FAERS Safety Report 8982933 (Version 1)
Quarter: 2012Q4

REPORT INFORMATION
  Report Type: Report from Study
  Country: US (occurrence: US)
  Receive Date: 20121221
  Receipt Date: 20121221
  Transmission Date: 20130627
  Serious: Yes (Hospitalization)
  Sender: FDA-Public Use
  Company Number: US-ABBOTT-12P-163-1022290-00

PATIENT
  Age: 23 Year
  Sex: Female

DRUGS (7)
  1. HUMIRA [Suspect]
     Indication: COLITIS ULCERATIVE
     Dates: start: 20121203, end: 20121203
  2. ASACOL [Concomitant]
     Indication: COLITIS ULCERATIVE
  3. GANCICLOVIR [Concomitant]
     Indication: CYTOMEGALOVIRUS INFECTION
  4. PREDNISONE [Concomitant]
     Indication: COLITIS ULCERATIVE
  5. MERCAPTOPURINE [Concomitant]
     Indication: COLITIS ULCERATIVE
  6. ROWASA [Concomitant]
     Indication: COLITIS ULCERATIVE
  7. LOPRESSOR [Concomitant]
     Indication: HYPERTENSION

REACTIONS (3)
  - Weight decreased [Not Recovered/Not Resolved]
  - Red blood cell count decreased [Not Recovered/Not Resolved]
  - Drug ineffective [Not Recovered/Not Resolved]
